FAERS Safety Report 17439871 (Version 1)
Quarter: 2020Q1

REPORT INFORMATION
  Report Type: Spontaneous
  Country: US (occurrence: US)
  Receive Date: 20200204
  Receipt Date: 20200204
  Transmission Date: 20200409
  Serious: Yes (Hospitalization)
  Sender: FDA-Public Use
  Company Number: None

PATIENT
  Age: 63 Year
  Sex: Male

DRUGS (1)
  1. IBUPROFEN (IBUPROFEN 800MG TAB) [Suspect]
     Active Substance: IBUPROFEN
     Indication: PAIN
     Dates: start: 20190410, end: 20190920

REACTIONS (7)
  - Abdominal pain [None]
  - Anaemia [None]
  - Erosive oesophagitis [None]
  - Haemorrhage [None]
  - Vomiting [None]
  - Nausea [None]
  - Gastric haemorrhage [None]

NARRATIVE: CASE EVENT DATE: 20190920
